FAERS Safety Report 11555342 (Version 2)
Quarter: 2015Q4

REPORT INFORMATION
  Report Type: Spontaneous
  Country: US (occurrence: US)
  Receive Date: 20150925
  Receipt Date: 20151020
  Transmission Date: 20160304
  Serious: Yes (Other)
  Sender: FDA-Public Use
  Company Number: US-PFIZER INC-2015317316

PATIENT
  Age: 72 Year
  Sex: Female
  Weight: 54.42 kg

DRUGS (6)
  1. LORAZEPAM. [Concomitant]
     Active Substance: LORAZEPAM
     Dosage: 0.5 MG, 2X/DAY
  2. MUCINEX [Concomitant]
     Active Substance: GUAIFENESIN
     Dosage: 600 MG, TWO TABLETS TWICE A DAY
  3. BRINTELLIX [Concomitant]
     Active Substance: VORTIOXETINE HYDROBROMIDE
     Dosage: 5 MG, 1X/DAY
  4. VALSARTAN. [Concomitant]
     Active Substance: VALSARTAN
     Indication: BLOOD PRESSURE MEASUREMENT
     Dosage: 20 MG, 1X/DAY
  5. NICOTROL [Suspect]
     Active Substance: NICOTINE
     Dosage: 10 MG, UNK
     Dates: start: 2008
  6. GUAIFENESIN. [Concomitant]
     Active Substance: GUAIFENESIN
     Dosage: 600 MG, TWO TABLETS TWICE A DAY

REACTIONS (2)
  - Pneumonia [Unknown]
  - Chronic obstructive pulmonary disease [Not Recovered/Not Resolved]

NARRATIVE: CASE EVENT DATE: 2015
